FAERS Safety Report 10737164 (Version 2)
Quarter: 2015Q3

REPORT INFORMATION
  Report Type: Spontaneous
  Country: US (occurrence: US)
  Receive Date: 20150126
  Receipt Date: 20150817
  Transmission Date: 20151125
  Serious: No
  Sender: FDA-Public Use
  Company Number: US-CELGENEUS-USA-2014114502

PATIENT
  Age: 68 Year
  Sex: Female

DRUGS (1)
  1. THALOMID [Suspect]
     Active Substance: THALIDOMIDE
     Indication: PLASMA CELL MYELOMA
     Dosage: 400 MILLIGRAM
     Route: 048
     Dates: start: 20141014, end: 20141105

REACTIONS (7)
  - Constipation [Unknown]
  - Headache [Unknown]
  - Diarrhoea [Unknown]
  - Fatigue [Unknown]
  - Syncope [Unknown]
  - Pulmonary congestion [Unknown]
  - Vomiting [Unknown]

NARRATIVE: CASE EVENT DATE: 20141018
